FAERS Safety Report 15022334 (Version 1)
Quarter: 2018Q2

REPORT INFORMATION
  Report Type: Spontaneous
  Country: JP (occurrence: JP)
  Receive Date: 20180618
  Receipt Date: 20180618
  Transmission Date: 20180711
  Serious: Yes (Other)
  Sender: FDA-Public Use
  Company Number: JP-PFIZER INC-2017278374

PATIENT
  Sex: Male

DRUGS (10)
  1. ZITHROMAC [Concomitant]
     Active Substance: AZITHROMYCIN DIHYDRATE
     Indication: MYCOBACTERIUM AVIUM COMPLEX INFECTION
     Dosage: 600 MG, 1X/DAY
     Dates: start: 20160119
  2. ESANBUTOL [Concomitant]
     Active Substance: ETHAMBUTOL HYDROCHLORIDE
     Dosage: 1000 MG, 1X/DAY
     Dates: start: 20160119
  3. FLUCONAZOLE. [Concomitant]
     Active Substance: FLUCONAZOLE
     Indication: OROPHARYNGEAL CANDIDIASIS
     Dosage: 200 MG, 1X/DAY
     Dates: start: 20160119, end: 20160125
  4. MYCOBUTIN [Suspect]
     Active Substance: RIFABUTIN
     Indication: MYCOBACTERIUM AVIUM COMPLEX INFECTION
     Dosage: 300 MG, 1X/DAY
     Dates: start: 20160119
  5. FLUCONAZOLE. [Concomitant]
     Active Substance: FLUCONAZOLE
     Indication: OESOPHAGEAL CANDIDIASIS
  6. BENAMBAX [Concomitant]
     Active Substance: PENTAMIDINE
     Dosage: 0.33 BOTTLE ONCE PER 2WEEKS
     Dates: start: 20160401, end: 20160511
  7. TIVICAY [Concomitant]
     Active Substance: DOLUTEGRAVIR SODIUM
     Dosage: 50 MG, DAILY
     Dates: start: 20160106
  8. BENAMBAX [Concomitant]
     Active Substance: PENTAMIDINE
     Indication: ANTIFUNGAL PROPHYLAXIS
     Dosage: 0.33 BOTTLE ONCE PER 2WEEKS
     Dates: start: 20151224, end: 20160331
  9. EPZICOM [Concomitant]
     Active Substance: ABACAVIR SULFATE\LAMIVUDINE
     Indication: HIV INFECTION
     Dosage: 1 TABLET, DAILY
     Dates: start: 20151211
  10. BAKTAR [Concomitant]
     Active Substance: SULFAMETHOXAZOLE\TRIMETHOPRIM
     Indication: ANTIFUNGAL PROPHYLAXIS
     Dosage: 1 TABLET, 1X/DAY
     Dates: start: 20160511

REACTIONS (1)
  - Deafness [Not Recovered/Not Resolved]

NARRATIVE: CASE EVENT DATE: 201611
